FAERS Safety Report 7194039-3 (Version None)
Quarter: 2010Q4

REPORT INFORMATION
  Report Type: 
  Country: None (occurrence: None)
  Receive Date: 20101124
  Receipt Date: 20100810
  Transmission Date: 20110411
  Serious: No
  Sender: FDA-Public Use
  Company Number: 017032

PATIENT

DRUGS (1)
  1. LACOSAMIDE [Suspect]
     Dosage: (25 MG QD)

REACTIONS (1)
  - HYPONATRAEMIA [None]
